FAERS Safety Report 14308256 (Version 1)
Quarter: 2017Q4

REPORT INFORMATION
  Report Type: Spontaneous
  Country: US (occurrence: US)
  Receive Date: 20171219
  Receipt Date: 20171219
  Transmission Date: 20180321
  Serious: Yes (Hospitalization)
  Sender: FDA-Public Use
  Company Number: None

PATIENT
  Age: 18 Year
  Sex: Male

DRUGS (5)
  1. UPTRAVI [Concomitant]
     Active Substance: SELEXIPAG
  2. DIGOXIN. [Concomitant]
     Active Substance: DIGOXIN
  3. TRACLEER [Suspect]
     Active Substance: BOSENTAN
     Indication: PULMONARY ARTERIAL HYPERTENSION
     Route: 048
     Dates: start: 201412
  4. SILDENAFIL. [Concomitant]
     Active Substance: SILDENAFIL
  5. LAMICTAL [Concomitant]
     Active Substance: LAMOTRIGINE

REACTIONS (5)
  - Weight decreased [None]
  - Right ventricular dysfunction [None]
  - Dizziness [None]
  - Pulmonary hypertension [None]
  - Dyspnoea [None]

NARRATIVE: CASE EVENT DATE: 20171214
